FAERS Safety Report 17803094 (Version 1)
Quarter: 2020Q2

REPORT INFORMATION
  Report Type: Spontaneous
  Country: IT (occurrence: IT)
  Receive Date: 20200519
  Receipt Date: 20200519
  Transmission Date: 20200714
  Serious: Yes (Other)
  Sender: FDA-Public Use
  Company Number: NVSC2020IT135736

PATIENT
  Age: 70 Year

DRUGS (3)
  1. CARBOPLATIN. [Suspect]
     Active Substance: CARBOPLATIN
     Dosage: 430 MG, CYCLIC (350 MG, CYCLIC EVERY 3 WEEKS)
     Route: 042
     Dates: start: 201910
  2. PEMETREXED. [Suspect]
     Active Substance: PEMETREXED
     Indication: NON-SMALL CELL LUNG CANCER STAGE IV
     Dosage: 965 MG, CYCLIC (965 MG, CYCLIC EVERY 3 WEEKS)
     Route: 042
     Dates: start: 201910
  3. CARBOPLATIN. [Suspect]
     Active Substance: CARBOPLATIN
     Indication: NON-SMALL CELL LUNG CANCER STAGE IV
     Dosage: 430 MG, CYCLIC (430 MG, CYCLIC EVERY 3 WEEKS)
     Route: 042
     Dates: start: 201910

REACTIONS (5)
  - Neoplasm progression [Unknown]
  - Platelet count decreased [Recovered/Resolved]
  - Haematotoxicity [Recovered/Resolved]
  - Anaemia [Recovered/Resolved]
  - Neutropenia [Recovered/Resolved]

NARRATIVE: CASE EVENT DATE: 2019
